FAERS Safety Report 19750045 (Version 1)
Quarter: 2021Q3

REPORT INFORMATION
  Report Type: Spontaneous
  Country: US (occurrence: US)
  Receive Date: 20210824
  Receipt Date: 20210824
  Transmission Date: 20211014
  Serious: Yes (Death)
  Sender: FDA-Public Use
  Company Number: None

PATIENT
  Age: 77 Year
  Sex: Male

DRUGS (1)
  1. ESBRIET [Suspect]
     Active Substance: PIRFENIDONE
     Indication: IDIOPATHIC INTERSTITIAL PNEUMONIA
     Route: 048
     Dates: start: 20210624, end: 20210809

REACTIONS (4)
  - Weight decreased [None]
  - Asthenia [None]
  - Sluggishness [None]
  - Feeling abnormal [None]

NARRATIVE: CASE EVENT DATE: 20210819
